FAERS Safety Report 8250876-5 (Version None)
Quarter: 2012Q2

REPORT INFORMATION
  Report Type: 
  Country: None (occurrence: None)
  Receive Date: 20120402
  Receipt Date: 20120323
  Transmission Date: 20120825
  Serious: Yes (Other)
  Sender: FDA-Public Use
  Company Number: US-FRI-1000029354

PATIENT
  Sex: Female

DRUGS (2)
  1. GEODON [Suspect]
  2. VIIBRYD [Suspect]
     Route: 048

REACTIONS (2)
  - MUSCLE SPASMS [None]
  - DYSKINESIA [None]
